FAERS Safety Report 7401824-9 (Version None)
Quarter: 2011Q1

REPORT INFORMATION
  Report Type: 
  Country: None (occurrence: None)
  Receive Date: 20110329
  Receipt Date: 20110318
  Transmission Date: 20110831
  Serious: Yes (Hospitalization)
  Sender: FDA-Public Use
  Company Number: 029746

PATIENT
  Sex: Female

DRUGS (4)
  1. ALDACTONE [Concomitant]
  2. ALESION [Concomitant]
  3. FUROSEMIDE [Concomitant]
  4. XYZAL [Suspect]
     Indication: PRURITUS
     Dosage: (5 MG QD)
     Dates: start: 20110314, end: 20110316

REACTIONS (6)
  - DECREASED APPETITE [None]
  - HEPATIC FUNCTION ABNORMAL [None]
  - GAMMA-GLUTAMYLTRANSFERASE INCREASED [None]
  - PRURITUS [None]
  - ALANINE AMINOTRANSFERASE INCREASED [None]
  - ASPARTATE AMINOTRANSFERASE INCREASED [None]
